FAERS Safety Report 13026233 (Version 1)
Quarter: 2016Q4

REPORT INFORMATION
  Report Type: Spontaneous
  Country: US (occurrence: US)
  Receive Date: 20161214
  Receipt Date: 20161214
  Transmission Date: 20170207
  Serious: Yes (Hospitalization)
  Sender: FDA-Public Use
  Company Number: None

PATIENT

DRUGS (6)
  1. PROLYXIN [Concomitant]
  2. NAVANE [Concomitant]
     Active Substance: THIOTHIXENE
  3. MELATONIN [Concomitant]
     Active Substance: MELATONIN
  4. RISPERIDONE. [Suspect]
     Active Substance: RISPERIDONE
     Indication: PRODUCT USED FOR UNKNOWN INDICATION
     Dates: start: 19900109
  5. MIRAREL [Concomitant]
  6. HALDOHL [Concomitant]

REACTIONS (3)
  - Economic problem [None]
  - White blood cell count increased [None]
  - Unevaluable event [None]
